FAERS Safety Report 9552947 (Version 1)
Quarter: 2013Q3

REPORT INFORMATION
  Report Type: Spontaneous
  Country: US (occurrence: US)
  Receive Date: 20130925
  Receipt Date: 20130925
  Transmission Date: 20140515
  Serious: Yes (Hospitalization, Other)
  Sender: FDA-Public Use
  Company Number: US-ENDO PHARMACEUTICALS INC.-VALP20130010

PATIENT
  Sex: Male

DRUGS (2)
  1. VALPROIC ACID [Suspect]
     Indication: DRUG DISPENSING ERROR
     Route: 048
  2. LACTULOSE ORAL SOLUTION [Concomitant]
     Dosage: 20G/15ML
     Route: 048

REACTIONS (3)
  - Drug dispensing error [Unknown]
  - Accidental overdose [Recovered/Resolved]
  - Confusional state [Recovered/Resolved]
